FAERS Safety Report 20077092 (Version 1)
Quarter: 2021Q4

REPORT INFORMATION
  Report Type: Spontaneous
  Country: US (occurrence: None)
  Receive Date: 20211116
  Receipt Date: 20211116
  Transmission Date: 20220303
  Serious: Yes (Hospitalization)
  Sender: FDA-Public Use
  Company Number: None

PATIENT
  Sex: Female
  Weight: 64.5 kg

DRUGS (3)
  1. PERTUZUMAB [Suspect]
     Active Substance: PERTUZUMAB
     Dates: end: 20211108
  2. HERCEPTIN [Suspect]
     Active Substance: TRASTUZUMAB
     Dates: end: 20211108
  3. TAXOL [Suspect]
     Active Substance: PACLITAXEL
     Dates: end: 20211013

REACTIONS (12)
  - Cough [None]
  - Adverse drug reaction [None]
  - Dyspnoea [None]
  - Chest discomfort [None]
  - Tachycardia [None]
  - Cardiac failure [None]
  - Pneumonitis [None]
  - Pericardial effusion [None]
  - Viral pericarditis [None]
  - Pneumonia [None]
  - Blood pressure decreased [None]
  - Acute myocardial infarction [None]

NARRATIVE: CASE EVENT DATE: 20211109
